FAERS Safety Report 12178579 (Version 4)
Quarter: 2017Q2

REPORT INFORMATION
  Report Type: Report from Study
  Country: BR (occurrence: BR)
  Receive Date: 20160315
  Receipt Date: 20170531
  Transmission Date: 20170830
  Serious: Yes (Other)
  Sender: FDA-Public Use
  Company Number: BR-ROCHE-1725818

PATIENT
  Sex: Female
  Weight: 57 kg

DRUGS (4)
  1. PREDNISONE. [Concomitant]
     Active Substance: PREDNISONE
     Indication: RHEUMATOID ARTHRITIS
  2. ACTEMRA [Suspect]
     Active Substance: TOCILIZUMAB
     Indication: RHEUMATOID ARTHRITIS
     Dosage: LATEST INFUSION OF TOCILIZUMAB WAS ON 01/NOV/2016.
     Route: 042
     Dates: start: 20130920
  3. SELOZOK [Concomitant]
     Active Substance: METOPROLOL SUCCINATE
     Route: 065
  4. CAPTOPRIL. [Concomitant]
     Active Substance: CAPTOPRIL
     Route: 065

REACTIONS (7)
  - Influenza [Unknown]
  - Joint swelling [Unknown]
  - Ear disorder [Unknown]
  - Hypoacusis [Not Recovered/Not Resolved]
  - Weight decreased [Unknown]
  - Visual impairment [Unknown]
  - Blood pressure inadequately controlled [Unknown]
